FAERS Safety Report 10202333 (Version 1)
Quarter: 2014Q2

REPORT INFORMATION
  Report Type: Spontaneous
  Country: AU (occurrence: AU)
  Receive Date: 20140528
  Receipt Date: 20140528
  Transmission Date: 20141212
  Serious: Yes (Other)
  Sender: FDA-Public Use
  Company Number: AU-INCYTE CORPORATION-2014IN001390

PATIENT
  Sex: 0

DRUGS (1)
  1. JAKAVI [Suspect]
     Dosage: UNK UNK, UNK
     Route: 065

REACTIONS (2)
  - Bone pain [Unknown]
  - Urinary tract infection [Unknown]
